FAERS Safety Report 9333579 (Version 3)
Quarter: 2014Q1

REPORT INFORMATION
  Report Type: Spontaneous
  Country: US (occurrence: US)
  Receive Date: 20130606
  Receipt Date: 20140214
  Transmission Date: 20141002
  Serious: Yes (Other)
  Sender: FDA-Public Use
  Company Number: US-AMGEN-USASP2012078198

PATIENT
  Age: 56 Year
  Sex: Female
  Weight: 81.82 kg

DRUGS (4)
  1. PROLIA [Suspect]
     Indication: OSTEOPOROSIS POSTMENOPAUSAL
     Dosage: UNK UNK, Q6MO
     Route: 065
     Dates: start: 201112
  2. TOPAMAX [Concomitant]
  3. TORADOL [Concomitant]
  4. PHENERGAN                          /00033001/ [Concomitant]

REACTIONS (13)
  - Hand fracture [Unknown]
  - Vitamin D decreased [Not Recovered/Not Resolved]
  - Weight increased [Not Recovered/Not Resolved]
  - Swelling [Not Recovered/Not Resolved]
  - Migraine [Unknown]
  - Pain [Not Recovered/Not Resolved]
  - Dysphagia [Unknown]
  - Memory impairment [Unknown]
  - Accident [Unknown]
  - Feeling abnormal [Unknown]
  - Arthralgia [Unknown]
  - Back pain [Unknown]
  - Pain in extremity [Unknown]
